FAERS Safety Report 22399622 (Version 1)
Quarter: 2023Q2

REPORT INFORMATION
  Report Type: Report from Study
  Country: MX (occurrence: MX)
  Receive Date: 20230602
  Receipt Date: 20230602
  Transmission Date: 20230722
  Serious: Yes (Other)
  Sender: FDA-Public Use
  Company Number: MX-TAKEDA-2021TUS001325

PATIENT
  Age: 30 Year
  Sex: Female

DRUGS (4)
  1. VEDOLIZUMAB [Suspect]
     Active Substance: VEDOLIZUMAB
     Indication: Colitis ulcerative
     Dosage: 300 MILLIGRAM
     Route: 042
     Dates: start: 20201221
  2. VEDOLIZUMAB [Suspect]
     Active Substance: VEDOLIZUMAB
     Dosage: 300 MILLIGRAM
     Route: 042
  3. METICORTEN [Concomitant]
     Active Substance: PREDNISONE
     Dosage: 25 MILLIGRAM, QD
  4. ATEKA [Concomitant]
     Dosage: 1200 MILLIGRAM

REACTIONS (11)
  - Bronchospasm [Recovered/Resolved]
  - Incorrect drug administration rate [Recovered/Resolved]
  - Pruritus allergic [Recovered/Resolved]
  - Abdominal pain [Recovered/Resolved]
  - Arthralgia [Recovered/Resolved]
  - Fatigue [Recovered/Resolved]
  - Feeling abnormal [Not Recovered/Not Resolved]
  - Asthenia [Not Recovered/Not Resolved]
  - Diarrhoea [Recovered/Resolved]
  - Headache [Recovered/Resolved]
  - Pyrexia [Recovered/Resolved]

NARRATIVE: CASE EVENT DATE: 20210105
